FAERS Safety Report 23939589 (Version 2)
Quarter: 2024Q2

REPORT INFORMATION
  Report Type: Spontaneous
  Country: ES (occurrence: ES)
  Receive Date: 20240605
  Receipt Date: 20240617
  Transmission Date: 20240716
  Serious: Yes (Hospitalization, Other)
  Sender: FDA-Public Use
  Company Number: ES-UCBSA-2024027467

PATIENT
  Age: 29 Year
  Sex: Male

DRUGS (3)
  1. VIMPAT [Suspect]
     Active Substance: LACOSAMIDE
     Indication: Partial seizures
     Dosage: 100 MILLIGRAM, 2X/DAY (BID)
     Route: 048
     Dates: start: 20240327
  2. BRIVIACT [Suspect]
     Active Substance: BRIVARACETAM
     Indication: Epilepsy
     Dosage: 100 MILLIGRAM, 2X/DAY (BID)
     Dates: start: 201901
  3. BRIVIACT [Suspect]
     Active Substance: BRIVARACETAM
     Dosage: 300 MG DAILY, DIVIDED INTO DOSES OF 1.5 TABLETS EVERY 12 HOURS OR ALTERNATIVELY DOSES OF 100 MG EVER
     Dates: start: 20240519

REACTIONS (6)
  - Generalised tonic-clonic seizure [Recovered/Resolved with Sequelae]
  - Lactic acidosis [Recovered/Resolved]
  - Dizziness [Unknown]
  - Leukocytosis [Unknown]
  - Off label use [Unknown]
  - Overdose [Unknown]

NARRATIVE: CASE EVENT DATE: 20240501
